FAERS Safety Report 8199109-9 (Version None)
Quarter: 2012Q1

REPORT INFORMATION
  Report Type: 
  Country: None (occurrence: None)
  Receive Date: 20120309
  Receipt Date: 20120229
  Transmission Date: 20120608
  Serious: Yes (Other)
  Sender: FDA-Public Use
  Company Number: US-ROCHE-1044765

PATIENT
  Sex: Female
  Weight: 72.64 kg

DRUGS (6)
  1. ACTONEL [Suspect]
     Indication: PRODUCT USED FOR UNKNOWN INDICATION
     Dates: start: 20060901
  2. BONIVA [Suspect]
     Indication: PRODUCT USED FOR UNKNOWN INDICATION
     Route: 048
     Dates: start: 20090501
  3. BONIVA [Suspect]
     Route: 048
     Dates: start: 20090729
  4. BONIVA [Suspect]
     Route: 048
     Dates: start: 20100326
  5. FOSAMAX [Suspect]
     Indication: PRODUCT USED FOR UNKNOWN INDICATION
     Dates: start: 20080401
  6. ACTONEL [Suspect]
     Dates: start: 20070202

REACTIONS (3)
  - TIBIA FRACTURE [None]
  - FIBULA FRACTURE [None]
  - FEMUR FRACTURE [None]
